FAERS Safety Report 25682500 (Version 1)
Quarter: 2025Q3

REPORT INFORMATION
  Report Type: Spontaneous
  Country: US (occurrence: US)
  Receive Date: 20250814
  Receipt Date: 20250814
  Transmission Date: 20251021
  Serious: Yes (Other)
  Sender: ALEXION PHARMACEUTICALS
  Company Number: US-AstraZeneca-CH-00928958A

PATIENT
  Sex: Female

DRUGS (1)
  1. IMFINZI [Suspect]
     Active Substance: DURVALUMAB
     Route: 065

REACTIONS (6)
  - Administration site extravasation [Unknown]
  - Condition aggravated [Unknown]
  - Lung neoplasm malignant [Unknown]
  - Back pain [Unknown]
  - Tremor [Unknown]
  - Muscle spasms [Unknown]
